FAERS Safety Report 20633075 (Version 1)
Quarter: 2022Q1

REPORT INFORMATION
  Report Type: Report from Study
  Country: US (occurrence: US)
  Receive Date: 20220324
  Receipt Date: 20220324
  Transmission Date: 20220424
  Serious: Yes (Death, Life-Threatening, Hospitalization, Other)
  Sender: FDA-Public Use
  Company Number: US-BRISTOL-MYERS SQUIBB COMPANY-BMS-2022-020052

PATIENT
  Age: 65 Year
  Sex: Male
  Weight: 70 kg

DRUGS (16)
  1. NIVOLUMAB [Suspect]
     Active Substance: NIVOLUMAB
     Indication: Hepatocellular carcinoma
     Dosage: 70 MILLIGRAM
     Route: 065
     Dates: start: 20210809, end: 20210809
  2. NIVOLUMAB [Suspect]
     Active Substance: NIVOLUMAB
     Dosage: 480 MILLIGRAM
     Route: 065
     Dates: start: 20211103, end: 20211103
  3. IPILIMUMAB [Suspect]
     Active Substance: IPILIMUMAB
     Indication: Hepatocellular carcinoma
     Dosage: 211 MILLIGRAM
     Route: 065
     Dates: start: 20210809, end: 20210809
  4. IPILIMUMAB [Suspect]
     Active Substance: IPILIMUMAB
     Dosage: 200 MILLIGRAM
     Route: 065
     Dates: start: 20211013, end: 20211013
  5. NIVOLUMAB\RELATLIMAB-RMBW [Suspect]
     Active Substance: NIVOLUMAB\RELATLIMAB-RMBW
     Indication: Hepatocellular carcinoma
     Dates: start: 20210809, end: 20210809
  6. MEGACE [Concomitant]
     Active Substance: MEGESTROL ACETATE
     Indication: Adverse event
     Dosage: 30
     Route: 048
     Dates: start: 20210921
  7. LIDOCAINE VISCOUS [Concomitant]
     Active Substance: LIDOCAINE HYDROCHLORIDE
     Indication: Adverse event
     Dosage: 30
     Route: 048
     Dates: start: 20210811
  8. NYSTATIN [Concomitant]
     Active Substance: NYSTATIN
     Indication: Adverse event
     Dosage: 30
     Route: 048
     Dates: start: 20210811
  9. BENADRYL [Concomitant]
     Active Substance: DIPHENHYDRAMINE HYDROCHLORIDE
     Indication: Adverse event
     Dosage: 30
     Route: 048
     Dates: start: 20210811
  10. MAALOX [BISMUTH SUBSALICYLATE] [Concomitant]
     Indication: Adverse event
     Dosage: 30
     Route: 048
     Dates: start: 20210811
  11. MAALOX [BISMUTH SUBSALICYLATE] [Concomitant]
     Dosage: 30
     Route: 048
     Dates: start: 20210824
  12. HUMULIN R [Concomitant]
     Active Substance: INSULIN HUMAN
     Indication: Product used for unknown indication
     Dosage: 10
     Route: 058
     Dates: start: 20210830
  13. HUMULIN N [Concomitant]
     Active Substance: INSULIN HUMAN
     Indication: Product used for unknown indication
     Dosage: 25
     Route: 058
     Dates: start: 20210830
  14. MODERNA COVID-19 VACCINE [Concomitant]
     Active Substance: ELASOMERAN
     Indication: Prophylaxis
     Dosage: UNK
     Route: 030
     Dates: start: 20210311
  15. MODERNA COVID-19 VACCINE [Concomitant]
     Active Substance: ELASOMERAN
     Dosage: UNK
     Route: 030
     Dates: start: 20210417
  16. MODERNA COVID-19 VACCINE [Concomitant]
     Active Substance: ELASOMERAN
     Dosage: UNK
     Route: 030
     Dates: start: 20210825

REACTIONS (2)
  - Hyponatraemia [Fatal]
  - Respiratory failure [Unknown]

NARRATIVE: CASE EVENT DATE: 20220114
